FAERS Safety Report 6565073-9 (Version None)
Quarter: 2010Q1

REPORT INFORMATION
  Report Type: 
  Country: None (occurrence: None)
  Receive Date: 20100201
  Receipt Date: 20100121
  Transmission Date: 20100710
  Serious: Yes (Congenital Anomaly)
  Sender: FDA-Public Use
  Company Number: US-GILEAD-2010-0026620

PATIENT
  Sex: Female
  Weight: 3.14 kg

DRUGS (6)
  1. TRUVADA [Suspect]
     Route: 064
     Dates: start: 20090217
  2. NORVIR [Concomitant]
     Route: 048
     Dates: start: 20090312
  3. KALETRA [Concomitant]
     Route: 048
     Dates: start: 20090217, end: 20090312
  4. REYATAZ [Concomitant]
     Route: 048
     Dates: start: 20090508
  5. REYATAZ [Concomitant]
     Route: 048
     Dates: start: 20090312, end: 20090508
  6. RETROVIR [Concomitant]
     Route: 042
     Dates: start: 20090806, end: 20090807

REACTIONS (3)
  - CONGENITAL ACROCHORDON [None]
  - DELAYED CLOSURE OF CRANIAL SUTURES [None]
  - MATERNAL DRUGS AFFECTING FOETUS [None]
